FAERS Safety Report 6018408-X (Version None)
Quarter: 2008Q4

REPORT INFORMATION
  Report Type: 
  Country: None (occurrence: None)
  Receive Date: 20081219
  Receipt Date: 20080110
  Transmission Date: 20090506
  Serious: Yes (Hospitalization)
  Sender: FDA-Public Use
  Company Number: US200801001709

PATIENT
  Sex: Female

DRUGS (2)
  1. HUMULIN 70/30 [Suspect]
     Indication: DIABETES MELLITUS
     Dosage: 40 U , EACH MORNING
  2. HUMULIN R [Suspect]
     Indication: DIABETES MELLITUS
     Dosage: 4 U, EACH MORNING

REACTIONS (3)
  - BLOOD GLUCOSE INCREASED [None]
  - INSULIN RESISTANCE [None]
  - STRESS [None]
